FAERS Safety Report 16199012 (Version 2)
Quarter: 2020Q4

REPORT INFORMATION
  Report Type: Spontaneous
  Country: BR (occurrence: BR)
  Receive Date: 20190415
  Receipt Date: 20201015
  Transmission Date: 20210113
  Serious: Yes (Hospitalization, Other)
  Sender: FDA-Public Use
  Company Number: BR-JNJFOC-20190418566

PATIENT
  Age: 82 Year
  Sex: Female

DRUGS (9)
  1. INSULIN [Concomitant]
     Active Substance: INSULIN NOS
     Indication: DIABETES MELLITUS
     Dosage: UNK UNK, BID
     Route: 048
  2. RIVAROXABAN [Suspect]
     Active Substance: RIVAROXABAN
     Indication: EMBOLISM
     Dosage: 20 MG, QD
     Route: 048
     Dates: start: 201806
  3. AMLODIPINE [Concomitant]
     Active Substance: AMLODIPINE BESYLATE
     Indication: HYPERTENSION
     Dosage: 1 DF, QD
     Route: 048
     Dates: start: 2009
  4. BROMAZEPAN [Concomitant]
     Active Substance: BROMAZEPAM
     Indication: INSOMNIA
     Dosage: 10 MG, QD
     Route: 048
     Dates: start: 2004
  5. BRASART HCT [Concomitant]
     Active Substance: HYDROCHLOROTHIAZIDE\VALSARTAN
     Indication: HYPERTENSION
     Dosage: 160/12,5
     Route: 048
     Dates: start: 2009
  6. CILOSTAZOL. [Concomitant]
     Active Substance: CILOSTAZOL
     Indication: CARDIOVASCULAR DISORDER
     Dosage: 2 DF, QD
     Route: 048
     Dates: start: 201806
  7. BISOPROLOL [Concomitant]
     Active Substance: BISOPROLOL
     Dosage: 5 MG, QD
     Dates: start: 201812
  8. TAPAZOL                            /00532501/ [Concomitant]
     Indication: HYPOTHYROIDISM
     Dosage: 1 DF, QD
     Dates: start: 2004
  9. ESCITALOPRAM [Concomitant]
     Active Substance: ESCITALOPRAM OXALATE
     Indication: DEPRESSION
     Dosage: 10 MG, QD
     Route: 048
     Dates: start: 201810

REACTIONS (7)
  - Hypoaesthesia [Unknown]
  - Pain in extremity [Recovering/Resolving]
  - Fatigue [Unknown]
  - Pulmonary oedema [Recovered/Resolved]
  - Dyspnoea [Recovered/Resolved]
  - Dyspnoea [Recovered/Resolved]
  - Nasopharyngitis [Recovered/Resolved]

NARRATIVE: CASE EVENT DATE: 2019
